FAERS Safety Report 16568583 (Version 5)
Quarter: 2021Q1

REPORT INFORMATION
  Report Type: Report from Study
  Country: None (occurrence: FR)
  Receive Date: 20190712
  Receipt Date: 20210114
  Transmission Date: 20210419
  Serious: Yes (Hospitalization, Other)
  Sender: FDA-Public Use
  Company Number: FR-ABBVIE-19K-056-2847147-00

PATIENT
  Age: 62 Year
  Sex: Male

DRUGS (2)
  1. DUODOPA [Suspect]
     Active Substance: CARBIDOPA\LEVODOPA
  2. DUODOPA [Suspect]
     Active Substance: CARBIDOPA\LEVODOPA
     Indication: PARKINSON^S DISEASE
     Route: 050
     Dates: start: 201904

REACTIONS (9)
  - Urinary tract infection [Not Recovered/Not Resolved]
  - Wrong technique in device usage process [Unknown]
  - Stoma site inflammation [Unknown]
  - Urinary tract infection [Unknown]
  - Respiratory distress [Unknown]
  - Stoma site pain [Unknown]
  - Stoma site haemorrhage [Unknown]
  - Somnolence [Unknown]
  - Device occlusion [Unknown]

NARRATIVE: CASE EVENT DATE: 2019
